FAERS Safety Report 7047900-4 (Version None)
Quarter: 2010Q4

REPORT INFORMATION
  Report Type: 
  Country: None (occurrence: None)
  Receive Date: 20101015
  Receipt Date: 20100907
  Transmission Date: 20110411
  Serious: Yes (Death, Hospitalization, Other)
  Sender: FDA-Public Use
  Company Number: US-BAXTER-2009BH010292

PATIENT
  Age: 54 Year
  Sex: Male
  Weight: 96 kg

DRUGS (43)
  1. HEPARIN SODIUM INJECTION [Suspect]
     Indication: ARTERIOGRAM CORONARY
     Route: 042
     Dates: start: 20070912, end: 20070912
  2. HEPARIN SODIUM INJECTION [Suspect]
     Indication: CORONARY ANGIOPLASTY
     Route: 042
     Dates: start: 20070912, end: 20070912
  3. HEPARIN SODIUM INJECTION [Suspect]
     Indication: STENT PLACEMENT
     Route: 042
     Dates: start: 20070912, end: 20070912
  4. HEPARIN SODIUM INJECTION [Suspect]
     Route: 042
     Dates: start: 20070912, end: 20070912
  5. HEPARIN SODIUM INJECTION [Suspect]
     Route: 042
     Dates: start: 20070912, end: 20070912
  6. HEPARIN SODIUM INJECTION [Suspect]
     Route: 042
     Dates: start: 20070912, end: 20070912
  7. HEPARIN SODIUM INJECTION [Suspect]
     Route: 042
     Dates: start: 20070912, end: 20070912
  8. HEPARIN SODIUM INJECTION [Suspect]
     Route: 042
     Dates: start: 20070912, end: 20070912
  9. HEPARIN SODIUM INJECTION [Suspect]
     Route: 042
     Dates: start: 20070912, end: 20070912
  10. HEPARIN SODIUM INJECTION [Suspect]
  11. HEPARIN SODIUM INJECTION [Suspect]
  12. HEPARIN SODIUM INJECTION [Suspect]
  13. HEPARIN SODIUM INJECTION [Suspect]
     Route: 065
  14. HEPARIN SODIUM INJECTION [Suspect]
     Route: 065
  15. HEPARIN SODIUM INJECTION [Suspect]
     Route: 065
  16. HEPARIN SODIUM INJECTION [Suspect]
     Indication: PROPHYLAXIS
     Route: 042
     Dates: start: 20070913, end: 20070917
  17. HEPARIN SODIUM [Suspect]
     Indication: PERITONEAL DIALYSIS
     Route: 041
     Dates: start: 20070915
  18. CONTRAST MATERIAL [Suspect]
     Indication: ANGIOPLASTY
     Route: 065
     Dates: start: 20070912, end: 20070912
  19. SODIUM CHLORIDE 0.9% IN PLASTIC CONTAINER [Concomitant]
     Indication: ARTERIOGRAM CORONARY
     Route: 041
     Dates: start: 20070912, end: 20070913
  20. LISINOPRIL [Concomitant]
     Indication: PRODUCT USED FOR UNKNOWN INDICATION
     Route: 065
  21. TOPROL-XL [Concomitant]
     Indication: PRODUCT USED FOR UNKNOWN INDICATION
     Route: 065
  22. ASPIRIN [Concomitant]
     Indication: PRODUCT USED FOR UNKNOWN INDICATION
     Route: 065
  23. ZINC [Concomitant]
     Indication: PRODUCT USED FOR UNKNOWN INDICATION
     Route: 065
  24. GARLIC [Concomitant]
     Indication: PRODUCT USED FOR UNKNOWN INDICATION
     Route: 065
  25. VITAMIN B-12 [Concomitant]
     Indication: PRODUCT USED FOR UNKNOWN INDICATION
     Route: 065
  26. ASCORBIC ACID [Concomitant]
     Indication: PRODUCT USED FOR UNKNOWN INDICATION
     Route: 065
  27. CALCIUM [Concomitant]
     Indication: PRODUCT USED FOR UNKNOWN INDICATION
     Route: 065
  28. MULTI-VITAMINS [Concomitant]
     Indication: PRODUCT USED FOR UNKNOWN INDICATION
     Route: 065
  29. IBUPROFEN [Concomitant]
     Indication: PRODUCT USED FOR UNKNOWN INDICATION
     Route: 065
  30. ACYCLOVIR [Concomitant]
     Indication: PRODUCT USED FOR UNKNOWN INDICATION
     Route: 065
  31. DEXAMETHASONE [Concomitant]
     Indication: PRODUCT USED FOR UNKNOWN INDICATION
     Route: 065
  32. VALIUM [Concomitant]
     Indication: PRODUCT USED FOR UNKNOWN INDICATION
     Route: 065
  33. DIPHENHYDRAMINE [Concomitant]
     Indication: PRODUCT USED FOR UNKNOWN INDICATION
     Route: 065
  34. ANGIOMAX [Concomitant]
     Indication: PRODUCT USED FOR UNKNOWN INDICATION
     Route: 065
  35. VERSED [Concomitant]
     Indication: PRODUCT USED FOR UNKNOWN INDICATION
     Route: 065
  36. FENTANYL [Concomitant]
     Indication: PRODUCT USED FOR UNKNOWN INDICATION
     Route: 065
  37. ZOFRAN [Concomitant]
     Indication: PRODUCT USED FOR UNKNOWN INDICATION
     Route: 065
  38. SOLU-MEDROL [Concomitant]
     Indication: PRODUCT USED FOR UNKNOWN INDICATION
     Route: 065
  39. PANTOPRAZOLE [Concomitant]
     Indication: PRODUCT USED FOR UNKNOWN INDICATION
     Route: 065
  40. PLAVIX [Concomitant]
     Indication: PRODUCT USED FOR UNKNOWN INDICATION
     Route: 065
  41. PLAVIX [Concomitant]
     Route: 065
  42. ASPIRIN [Concomitant]
     Route: 065
  43. METOPROLOL [Concomitant]
     Indication: PRODUCT USED FOR UNKNOWN INDICATION
     Route: 065

REACTIONS (20)
  - ACUTE PULMONARY OEDEMA [None]
  - ACUTE RESPIRATORY DISTRESS SYNDROME [None]
  - ANAPHYLACTOID REACTION [None]
  - CHEST DISCOMFORT [None]
  - CHEST PAIN [None]
  - DYSPNOEA [None]
  - FLUSHING [None]
  - HYPOAESTHESIA [None]
  - HYPOAESTHESIA ORAL [None]
  - HYPOTENSION [None]
  - HYPOXIA [None]
  - LIP SWELLING [None]
  - METABOLIC ACIDOSIS [None]
  - MULTI-ORGAN FAILURE [None]
  - NAUSEA [None]
  - PARAESTHESIA [None]
  - PARAESTHESIA ORAL [None]
  - RASH [None]
  - RENAL FAILURE ACUTE [None]
  - RESPIRATORY ACIDOSIS [None]
